FAERS Safety Report 8614645-6 (Version None)
Quarter: 2012Q3

REPORT INFORMATION
  Report Type: 
  Country: None (occurrence: None)
  Receive Date: 20120823
  Receipt Date: 20120813
  Transmission Date: 20120928
  Serious: Yes (Hospitalization, Other)
  Sender: FDA-Public Use
  Company Number: US-009507513-1111USA03155

PATIENT

DRUGS (17)
  1. FOSAMAX [Suspect]
     Dosage: 70 MG, QW
     Route: 048
     Dates: end: 20100127
  2. PRILOSEC [Concomitant]
     Dosage: 20 MG, QD
     Route: 048
  3. CLARITIN-D [Concomitant]
     Indication: HYPERSENSITIVITY
     Dosage: 1 DF, QD
  4. PRAVACHOL [Concomitant]
     Indication: HYPERLIPIDAEMIA
     Dosage: 20 MG, QD
  5. MAGNESIA [MILK OF] [Concomitant]
     Dosage: 2 DF, UNK
  6. ZOCOR [Concomitant]
     Indication: HYPERLIPIDAEMIA
     Dosage: 10 MG, QD
     Route: 048
  7. TOPROL-XL [Concomitant]
     Indication: HYPERTENSION
     Dosage: 50 MG, QD
  8. LANSOPRAZOLE [Concomitant]
     Dates: start: 19960101
  9. CARDIZEM CD [Concomitant]
     Dosage: 240 MG, QD
  10. CALCIUM (UNSPECIFIED) [Concomitant]
     Indication: OSTEOPOROSIS
  11. PREMARIN [Concomitant]
     Dosage: 0.625 MG, QD
  12. CATAPRES-TTS-1 [Concomitant]
     Dosage: 0.1 MG, QW
     Route: 061
  13. FOSAMAX [Suspect]
     Dosage: 10 MG, QD
     Route: 048
     Dates: start: 19960604
  14. HORMONES (UNSPECIFIED) [Concomitant]
     Dates: start: 19720101, end: 20091004
  15. DILTIAZEM HCL [Concomitant]
     Indication: HYPERTENSION
  16. ESTROGENS (UNSPECIFIED) [Concomitant]
     Indication: MENOPAUSAL SYMPTOMS
  17. METAMUCIL-2 [Concomitant]
     Dosage: 1 DF, QD

REACTIONS (74)
  - DENTAL PROSTHESIS USER [None]
  - DEVICE MALFUNCTION [None]
  - ADVERSE EVENT [None]
  - OSTEOARTHRITIS [None]
  - OVERDOSE [None]
  - NEUROMA [None]
  - HYPOTHYROIDISM [None]
  - HOT FLUSH [None]
  - ANXIETY [None]
  - CATARACT [None]
  - URINARY TRACT INFECTION [None]
  - TENDONITIS [None]
  - RECTAL LESION [None]
  - OBSESSIVE-COMPULSIVE DISORDER [None]
  - HYPONATRAEMIA [None]
  - DIZZINESS [None]
  - OPEN REDUCTION OF FRACTURE [None]
  - HAEMORRHOID OPERATION [None]
  - HYPERTROPHIC CARDIOMYOPATHY [None]
  - PALPITATIONS [None]
  - BLADDER PROLAPSE [None]
  - CONTUSION [None]
  - ANGIOPATHY [None]
  - AORTIC BRUIT [None]
  - HEART RATE INCREASED [None]
  - OSTEONECROSIS [None]
  - BONE SARCOMA [None]
  - SEBORRHOEIC KERATOSIS [None]
  - LUMBAR SPINAL STENOSIS [None]
  - CARDIAC MURMUR [None]
  - PARAESTHESIA [None]
  - LUNG NEOPLASM [None]
  - RADIATION SKIN INJURY [None]
  - HAEMORRHAGIC ANAEMIA [None]
  - JAW DISORDER [None]
  - CYSTOCELE [None]
  - GASTROENTERITIS VIRAL [None]
  - BUNDLE BRANCH BLOCK LEFT [None]
  - LEFT VENTRICULAR HYPERTROPHY [None]
  - HYPOKALAEMIA [None]
  - GASTROOESOPHAGEAL REFLUX DISEASE [None]
  - FEMUR FRACTURE [None]
  - STENT PLACEMENT [None]
  - ABDOMINAL ADHESIONS [None]
  - CORONARY ARTERY DISEASE [None]
  - NASAL CONGESTION [None]
  - EXOSTOSIS [None]
  - ECCHYMOSIS [None]
  - INSOMNIA [None]
  - GASTRITIS [None]
  - VERTIGO [None]
  - OSTEOPENIA [None]
  - HAEMORRHOIDS [None]
  - FOOT DEFORMITY [None]
  - TOOTH INFECTION [None]
  - POLLAKIURIA [None]
  - NOCTURIA [None]
  - PNEUMONITIS [None]
  - MITRAL VALVE INCOMPETENCE [None]
  - MYOCARDIAL INFARCTION [None]
  - FRACTURE DELAYED UNION [None]
  - RETINAL DETACHMENT [None]
  - FALL [None]
  - ECZEMA NUMMULAR [None]
  - TENDON DISORDER [None]
  - ANAEMIA [None]
  - AORTIC VALVE DISEASE [None]
  - OESOPHAGEAL STENOSIS [None]
  - SPINDLE CELL SARCOMA [None]
  - CHEST PAIN [None]
  - TOOTH DISORDER [None]
  - BRONCHITIS [None]
  - DIASTOLIC DYSFUNCTION [None]
  - CONSTIPATION [None]
